FAERS Safety Report 9312160 (Version 1)
Quarter: 2013Q2

REPORT INFORMATION
  Report Type: Spontaneous
  Country: GB (occurrence: GB)
  Receive Date: 20130528
  Receipt Date: 20130528
  Transmission Date: 20140414
  Serious: Yes (Other)
  Sender: FDA-Public Use
  Company Number: GB-BANPHARM-20131342

PATIENT
  Sex: Male
  Weight: 72.5 kg

DRUGS (5)
  1. IBUPROFEN UNKNOWN PRODUCT [Suspect]
     Dates: start: 20130503
  2. AMOXICILLIN [Concomitant]
     Dates: start: 20110907
  3. METHADONE [Concomitant]
     Dates: start: 20130117, end: 20130214
  4. PREDNISOLONE [Concomitant]
     Dates: start: 20110907
  5. PROMETHAZINE HYDROCHLORIDE [Concomitant]
     Dates: start: 20110907

REACTIONS (1)
  - Asthma [Recovered/Resolved]
